FAERS Safety Report 21292547 (Version 1)
Quarter: 2022Q3

REPORT INFORMATION
  Report Type: Spontaneous
  Country: US (occurrence: US)
  Receive Date: 20220905
  Receipt Date: 20220905
  Transmission Date: 20221027
  Serious: Yes (Death, Hospitalization, Other)
  Sender: FDA-Public Use
  Company Number: US-SUN PHARMACEUTICAL INDUSTRIES LTD-2022R1-353413

PATIENT
  Age: 37 Year
  Sex: Female

DRUGS (18)
  1. AMPHOTERICIN B [Suspect]
     Active Substance: AMPHOTERICIN B
     Indication: Product used for unknown indication
     Dosage: 5 MILLIGRAM/KILOGRAM, QD
     Route: 042
  2. ACYCLOVIR [Suspect]
     Active Substance: ACYCLOVIR
     Indication: Astrocytoma
     Dosage: 10 MILLIGRAM/KILOGRAM, TID
     Route: 042
  3. ACYCLOVIR [Suspect]
     Active Substance: ACYCLOVIR
     Indication: Glioblastoma
  4. BROMOCRIPTINE [Suspect]
     Active Substance: BROMOCRIPTINE
     Indication: Autonomic nervous system imbalance
     Dosage: 5 MILLIGRAM
  5. CEFTRIAXONE [Suspect]
     Active Substance: CEFTRIAXONE
     Indication: Astrocytoma
     Dosage: 2 GRAM, BID
     Route: 042
  6. CEFTRIAXONE [Suspect]
     Active Substance: CEFTRIAXONE
     Indication: Glioblastoma
  7. GABAPENTIN [Suspect]
     Active Substance: GABAPENTIN
     Indication: Autonomic nervous system imbalance
     Dosage: 300 MILLIGRAM
  8. HYDRALAZINE [Suspect]
     Active Substance: HYDRALAZINE HYDROCHLORIDE
     Indication: Blood pressure increased
     Dosage: 10 MILLIGRAM
     Route: 042
  9. MEROPENEM [Suspect]
     Active Substance: MEROPENEM
     Indication: Astrocytoma
     Dosage: 2 GRAM, TID
     Route: 042
  10. MEROPENEM [Suspect]
     Active Substance: MEROPENEM
     Indication: Glioblastoma
  11. METHYLPREDNISOLONE [Suspect]
     Active Substance: METHYLPREDNISOLONE
     Indication: Guillain-Barre syndrome
     Dosage: 500 MILLIGRAM, BID
     Route: 042
  12. NICARDIPINE [Suspect]
     Active Substance: NICARDIPINE
     Indication: Blood pressure increased
     Dosage: 2.5 MILLIGRAM/ HR
     Route: 042
  13. VANCOMYCIN HYDROCHLORIDE [Suspect]
     Active Substance: VANCOMYCIN HYDROCHLORIDE
     Indication: Astrocytoma
     Dosage: 1200 MILLIGRAM, BID
     Route: 042
  14. VANCOMYCIN HYDROCHLORIDE [Suspect]
     Active Substance: VANCOMYCIN HYDROCHLORIDE
     Indication: Glioblastoma
  15. DEXAMETHASONE [Suspect]
     Active Substance: DEXAMETHASONE
     Indication: Astrocytoma
     Dosage: 4 MILLIGRAM, QID
     Route: 042
  16. DEXAMETHASONE [Suspect]
     Active Substance: DEXAMETHASONE
     Indication: Glioblastoma
  17. LABETALOL [Suspect]
     Active Substance: LABETALOL\LABETALOL HYDROCHLORIDE
     Indication: Blood pressure increased
     Dosage: 10 MILLIGRAM
     Route: 042
  18. METHOTREXATE [Suspect]
     Active Substance: METHOTREXATE
     Indication: Guillain-Barre syndrome
     Dosage: 5025 MILLIGRAM OVER 2 HRS
     Route: 042

REACTIONS (1)
  - Disease progression [Fatal]
